FAERS Safety Report 5309788-9 (Version None)
Quarter: 2007Q2

REPORT INFORMATION
  Report Type: 
  Country: None (occurrence: None)
  Receive Date: 20070427
  Receipt Date: 20060308
  Transmission Date: 20071010
  Serious: No
  Sender: FDA-Public Use
  Company Number: US-GLAXOSMITHKLINE-A0596744A

PATIENT
  Age: 92 Year
  Sex: Female

DRUGS (6)
  1. ZOFRAN [Suspect]
     Indication: NAUSEA
     Dosage: 4MG SINGLE DOSE
     Route: 048
     Dates: start: 20060308, end: 20060308
  2. LASIX [Concomitant]
     Dosage: 40MG PER DAY
  3. ALLOPURINOL [Concomitant]
     Dosage: 100MG THREE TIMES PER WEEK
  4. STOOL SOFTENER [Concomitant]
  5. REGLAN [Concomitant]
     Indication: NAUSEA
     Dates: start: 20060303, end: 20060304
  6. PROCHLORPERAZINE [Concomitant]
     Indication: NAUSEA
     Dates: start: 20060305, end: 20060307

REACTIONS (1)
  - ABDOMINAL PAIN UPPER [None]
